FAERS Safety Report 7778279-8 (Version None)
Quarter: 2011Q3

REPORT INFORMATION
  Report Type: 
  Country: None (occurrence: None)
  Receive Date: 20110926
  Receipt Date: 20110922
  Transmission Date: 20111222
  Serious: Yes (Other)
  Sender: FDA-Public Use
  Company Number: US-BAYER-2011-028763

PATIENT
  Age: 48 Year
  Sex: Female

DRUGS (4)
  1. BETASERON [Suspect]
     Dosage: 8 MIU, QOD
     Dates: start: 20110320
  2. BETASERON [Suspect]
     Dosage: 8 MIU, QOD
     Route: 058
  3. ACETAMINOPHEN [Concomitant]
  4. BETASERON [Suspect]
     Indication: MULTIPLE SCLEROSIS
     Dosage: 4 MIU, QOD
     Route: 058
     Dates: start: 20110320

REACTIONS (4)
  - INJECTION SITE REACTION [None]
  - INJECTION SITE HAEMORRHAGE [None]
  - CENTRAL NERVOUS SYSTEM LESION [None]
  - EPISTAXIS [None]
